FAERS Safety Report 9159437 (Version 2)
Quarter: 2013Q2

REPORT INFORMATION
  Report Type: Report from Study
  Country: BR (occurrence: BR)
  Receive Date: 20130313
  Receipt Date: 20130417
  Transmission Date: 20140414
  Serious: Yes (Hospitalization, Other)
  Sender: FDA-Public Use
  Company Number: PHHY2013BR023278

PATIENT
  Age: 69 Year
  Sex: Female

DRUGS (7)
  1. DIOVAN AMLO FIX [Suspect]
     Indication: HYPERTENSION
     Dosage: 1 DF (VALS 320 MG, AMLO 5 MG), QD (IN MORNING)
     Route: 048
     Dates: end: 201303
  2. ALENIA [Concomitant]
     Indication: DYSPNOEA
     Dosage: 1 DF (BUDE 400 UG, FORM 12 UG), BID
  3. PROTOS (PROTOPORPHYRIN DISODIUM) [Concomitant]
     Indication: OSTEOPOROSIS
     Dosage: 1 DF (2 MG), DAILY
     Route: 048
  4. PURAN T4 [Concomitant]
     Indication: THYROID DISORDER
     Dosage: 1 DF(50 UG), DAILY
     Route: 048
  5. PRESSAT [Concomitant]
     Dosage: 1 DF(2.5 MG), DAILY
     Route: 048
  6. NATRILIX SR [Concomitant]
     Dosage: 1 DF(1.5 MG), DAILY
     Route: 048
  7. SIMVASTATIN [Concomitant]
     Indication: BLOOD CHOLESTEROL ABNORMAL
     Dosage: 1 DF(40 MG), DAILY
     Route: 048

REACTIONS (8)
  - Fall [Recovered/Resolved]
  - Upper limb fracture [Recovered/Resolved]
  - Femur fracture [Recovered/Resolved]
  - Abasia [Recovered/Resolved]
  - Oedema peripheral [Recovered/Resolved]
  - Parkinson^s disease [Recovered/Resolved]
  - Nervousness [Unknown]
  - Blood pressure increased [Recovered/Resolved]
